FAERS Safety Report 9451575 (Version 1)
Quarter: 2013Q3

REPORT INFORMATION
  Report Type: Spontaneous
  Country: US (occurrence: US)
  Receive Date: 20130811
  Receipt Date: 20130811
  Transmission Date: 20140515
  Serious: No
  Sender: FDA-Public Use
  Company Number: US-009507513-1307USA016898

PATIENT
  Sex: Male

DRUGS (5)
  1. ZOCOR [Suspect]
     Indication: HYPERCHOLESTEROLAEMIA
     Dosage: TAKE ONE TABLET IN THE EVENING
     Route: 048
     Dates: start: 2005, end: 2012
  2. METOPROLOL [Concomitant]
  3. CENTRUM (MINERALS (UNSPECIFIED) (+) VITAMINS (UNSPECIFIED)) [Concomitant]
  4. OMEGA-3 MARINE TRIGLYCERIDES [Concomitant]
  5. UBIDECARENONE [Concomitant]

REACTIONS (1)
  - Pain in extremity [Not Recovered/Not Resolved]
